FAERS Safety Report 24548149 (Version 1)
Quarter: 2024Q4

REPORT INFORMATION
  Report Type: Spontaneous
  Country: CN (occurrence: CN)
  Receive Date: 20241025
  Receipt Date: 20241025
  Transmission Date: 20250114
  Serious: Yes (Life-Threatening, Hospitalization)
  Sender: ACCORD
  Company Number: CN-MLMSERVICE-20241010-PI223517-00082-1

PATIENT
  Age: 69 Year
  Sex: Female

DRUGS (4)
  1. CARBOPLATIN [Suspect]
     Active Substance: CARBOPLATIN
     Indication: Clear cell endometrial carcinoma
     Dosage: CARBOPLATIN, 400 MG ON DAY 2, FOUR CYCLES, Q2W
     Dates: start: 20210929
  2. PACLITAXEL [Suspect]
     Active Substance: PACLITAXEL
     Indication: Clear cell endometrial carcinoma
     Dosage: ALBUMIN PACLITAXEL 300 MG, ON DAY 1, FOUR CYCLES, Q2W
     Dates: start: 20210929
  3. PACLITAXEL [Suspect]
     Active Substance: PACLITAXEL
     Indication: Endometrial cancer stage III
     Dosage: ALBUMIN PACLITAXEL 300 MG, ON DAY 1, FOUR CYCLES, Q2W
     Dates: start: 20210929
  4. CARBOPLATIN [Suspect]
     Active Substance: CARBOPLATIN
     Indication: Endometrial cancer stage III
     Dosage: CARBOPLATIN, 400 MG ON DAY 2, FOUR CYCLES, Q2W
     Dates: start: 20210929

REACTIONS (2)
  - Myelosuppression [Unknown]
  - Gastrointestinal disorder [Unknown]

NARRATIVE: CASE EVENT DATE: 20210101
